FAERS Safety Report 15457041 (Version 1)
Quarter: 2018Q4

REPORT INFORMATION
  Report Type: Spontaneous
  Country: CA (occurrence: CA)
  Receive Date: 20181002
  Receipt Date: 20181002
  Transmission Date: 20190204
  Serious: Yes (Other)
  Sender: FDA-Public Use
  Company Number: CA-ASCEND THERAPEUTICS-2055598

PATIENT
  Age: 55 Year
  Sex: Female

DRUGS (13)
  1. DEXILANT [Concomitant]
     Active Substance: DEXLANSOPRAZOLE
  2. MERIVA (CURCUMIN) [Concomitant]
  3. TOPIRAMATE. [Concomitant]
     Active Substance: TOPIRAMATE
  4. CETRIZINE HYDROCHLORIDE (CETIRIZINE HYDROCHLORIDE) [Concomitant]
  5. METONIA (METOCLOPRAMIDE HYDROCHLORIDE) [Concomitant]
  6. MEZAVANT (MESALAZINE) [Concomitant]
  7. ESTROGEL [Suspect]
     Active Substance: ESTRADIOL
     Indication: PRODUCT USED FOR UNKNOWN INDICATION
  8. MELATONIN (MELATONIN) [Concomitant]
     Active Substance: MELATONIN
  9. TYLENOL [Concomitant]
     Active Substance: ACETAMINOPHEN
  10. ALIROCUMAB (ALIROCUMAB) [Suspect]
     Active Substance: ALIROCUMAB
  11. PREGABALIN. [Concomitant]
     Active Substance: PREGABALIN
  12. PRALUENT [Suspect]
     Active Substance: ALIROCUMAB
     Route: 058
  13. CONSTELLA (LINACLOTIDE) [Concomitant]

REACTIONS (5)
  - Lipoma [Recovered/Resolved]
  - Weight bearing difficulty [Recovered/Resolved]
  - Pain in extremity [Recovered/Resolved]
  - Thrombosis [Recovered/Resolved]
  - Muscle spasms [Recovered/Resolved]
